FAERS Safety Report 4846351-8 (Version None)
Quarter: 2005Q4

REPORT INFORMATION
  Report Type: 
  Country: None (occurrence: None)
  Receive Date: 20051202
  Receipt Date: 20051202
  Transmission Date: 20060501
  Serious: Yes (Death)
  Sender: FDA-Public Use
  Company Number: None

PATIENT
  Age: 64 Year
  Sex: Male
  Weight: 69 kg

DRUGS (3)
  1. POLOCAINE [Suspect]
     Indication: NERVE BLOCK
     Dosage: SEE IMAGE
     Dates: start: 20050721
  2. . [Concomitant]
  3. EPINEPHRINE [Suspect]
     Dosage: SEE IMAGE

REACTIONS (7)
  - AGITATION [None]
  - ANAESTHETIC COMPLICATION [None]
  - CARDIO-RESPIRATORY ARREST [None]
  - CONFUSIONAL STATE [None]
  - GRAND MAL CONVULSION [None]
  - VENTRICULAR FIBRILLATION [None]
  - VENTRICULAR TACHYCARDIA [None]
